FAERS Safety Report 6159276-5 (Version None)
Quarter: 2009Q2

REPORT INFORMATION
  Report Type: 
  Country: None (occurrence: None)
  Receive Date: 20090417
  Receipt Date: 20090407
  Transmission Date: 20091009
  Serious: Yes (Other)
  Sender: FDA-Public Use
  Company Number: PL-TEVA-191670ISR

PATIENT
  Sex: Female
  Weight: 88.5 kg

DRUGS (1)
  1. FOLINIC ACID [Suspect]
     Indication: NEOPLASM MALIGNANT
     Route: 042
     Dates: start: 20090317, end: 20090317

REACTIONS (3)
  - ANXIETY [None]
  - BLOOD PRESSURE INCREASED [None]
  - ERYTHEMA [None]
